FAERS Safety Report 10267868 (Version 2)
Quarter: 2014Q3

REPORT INFORMATION
  Report Type: Spontaneous
  Country: GB (occurrence: GB)
  Receive Date: 20140630
  Receipt Date: 20140721
  Transmission Date: 20150326
  Serious: Yes (Hospitalization)
  Sender: FDA-Public Use
  Company Number: GB-TEVA-489843ISR

PATIENT
  Age: 36 Year
  Sex: Female
  Weight: 57.15 kg

DRUGS (21)
  1. TRAMADOL [Suspect]
     Active Substance: TRAMADOL
     Indication: DEPRESSION
  2. MIRTAZAPINE. [Suspect]
     Active Substance: MIRTAZAPINE
     Indication: ANXIETY
     Route: 048
  3. MIRTAZAPINE. [Suspect]
     Active Substance: MIRTAZAPINE
     Indication: DEPRESSION
  4. ZYRTEC [Suspect]
     Active Substance: CETIRIZINE HYDROCHLORIDE
     Indication: ANXIETY
     Route: 048
  5. ANTIBIOTICS [Concomitant]
     Active Substance: UNSPECIFIED INGREDIENT
  6. CLOZAPINE. [Concomitant]
     Active Substance: CLOZAPINE
     Indication: INSOMNIA
  7. SENNA [Concomitant]
     Active Substance: SENNA LEAF\SENNOSIDES\SENNOSIDES A AND B
  8. SALBUTAMOL [Concomitant]
     Active Substance: ALBUTEROL
  9. VENLAFAXINE [Concomitant]
     Active Substance: VENLAFAXINE HYDROCHLORIDE
  10. SERTRALINE [Suspect]
     Active Substance: SERTRALINE HYDROCHLORIDE
     Indication: ANXIETY
     Route: 048
  11. CLARITHROMYCIN. [Concomitant]
     Active Substance: CLARITHROMYCIN
     Indication: INSOMNIA
  12. PREDNISOLONE. [Concomitant]
     Active Substance: PREDNISOLONE
  13. BUCCASTEM [Concomitant]
  14. PARACETAMOL [Concomitant]
     Active Substance: ACETAMINOPHEN
  15. ACICLOVIR [Concomitant]
     Active Substance: ACYCLOVIR
  16. FOSTAIR [Concomitant]
  17. LORAZEPAM. [Concomitant]
     Active Substance: LORAZEPAM
  18. ZYRTEC [Suspect]
     Active Substance: CETIRIZINE HYDROCHLORIDE
     Indication: DEPRESSION
  19. SERTRALINE [Suspect]
     Active Substance: SERTRALINE HYDROCHLORIDE
     Indication: DEPRESSION
  20. TRAMADOL [Suspect]
     Active Substance: TRAMADOL
     Indication: ANXIETY
  21. LACTULOSE. [Concomitant]
     Active Substance: LACTULOSE

REACTIONS (24)
  - Dizziness [Not Recovered/Not Resolved]
  - Convulsion [Not Recovered/Not Resolved]
  - Memory impairment [Unknown]
  - Joint stiffness [Not Recovered/Not Resolved]
  - Fatigue [Not Recovered/Not Resolved]
  - Erythema [Not Recovered/Not Resolved]
  - Visual impairment [Unknown]
  - Faecal incontinence [Unknown]
  - Pain [Not Recovered/Not Resolved]
  - Loss of consciousness [Not Recovered/Not Resolved]
  - Urinary tract infection [Not Recovered/Not Resolved]
  - Sleep disorder [Unknown]
  - Fatigue [Unknown]
  - Confusional state [Not Recovered/Not Resolved]
  - Contusion [Not Recovered/Not Resolved]
  - Asthenia [Unknown]
  - Feeling drunk [Unknown]
  - Energy increased [Unknown]
  - Fall [Unknown]
  - Headache [Unknown]
  - Paraesthesia [Unknown]
  - Weight decreased [Not Recovered/Not Resolved]
  - Tremor [Not Recovered/Not Resolved]
  - Dysarthria [Unknown]
